FAERS Safety Report 8390122-5 (Version None)
Quarter: 2012Q2

REPORT INFORMATION
  Report Type: 
  Country: None (occurrence: None)
  Receive Date: 20120529
  Receipt Date: 20120517
  Transmission Date: 20120825
  Serious: Yes (Hospitalization)
  Sender: FDA-Public Use
  Company Number: US-VERTEX PHARMACEUTICALS INC.-AE-2012-007526

PATIENT
  Sex: Female

DRUGS (4)
  1. INCIVEK [Suspect]
     Indication: HEPATITIS C
     Dates: start: 20120228, end: 20120427
  2. INCIVEK [Concomitant]
  3. RIBAVIRIN [Concomitant]
     Indication: HEPATITIS C
     Dates: start: 20120228, end: 20120427
  4. PEGASYS [Concomitant]
     Indication: HEPATITIS C
     Dates: start: 20120228, end: 20120427

REACTIONS (2)
  - DYSPNOEA [None]
  - SKIN REACTION [None]
